FAERS Safety Report 12624856 (Version 1)
Quarter: 2016Q3

REPORT INFORMATION
  Report Type: Spontaneous
  Country: US (occurrence: None)
  Receive Date: 20160804
  Receipt Date: 20160804
  Transmission Date: 20161109
  Serious: Yes (Hospitalization, Other)
  Sender: FDA-Public Use
  Company Number: None

PATIENT
  Age: 22 Year
  Sex: Male
  Weight: 90.72 kg

DRUGS (6)
  1. BUSPIRONE [Suspect]
     Active Substance: BUSPIRONE HYDROCHLORIDE
     Indication: PANIC ATTACK
     Route: 048
     Dates: start: 20160802, end: 20160802
  2. KLONOPIN [Concomitant]
     Active Substance: CLONAZEPAM
  3. GABAPENTIN. [Concomitant]
     Active Substance: GABAPENTIN
  4. CELEBREX [Concomitant]
     Active Substance: CELECOXIB
  5. BUSPIRONE [Suspect]
     Active Substance: BUSPIRONE HYDROCHLORIDE
     Indication: ANXIETY
     Route: 048
     Dates: start: 20160802, end: 20160802
  6. ROBAXIN [Concomitant]
     Active Substance: METHOCARBAMOL

REACTIONS (9)
  - Vertigo [None]
  - Palpitations [None]
  - Dyspnoea [None]
  - Tremor [None]
  - Dizziness [None]
  - Hyperhidrosis [None]
  - Feeling jittery [None]
  - Chest pain [None]
  - Blood pressure increased [None]

NARRATIVE: CASE EVENT DATE: 20160802
